FAERS Safety Report 19449258 (Version 2)
Quarter: 2021Q3

REPORT INFORMATION
  Report Type: Spontaneous
  Country: JP (occurrence: JP)
  Receive Date: 20210622
  Receipt Date: 20210712
  Transmission Date: 20211014
  Serious: Yes (Other)
  Sender: FDA-Public Use
  Company Number: JP-UCBSA-2021029299

PATIENT
  Age: 4 Year
  Sex: Female

DRUGS (8)
  1. TOPIRAMATE. [Suspect]
     Active Substance: TOPIRAMATE
     Indication: CLONIC CONVULSION
     Dosage: UNKNOWN DOSE
  2. SODIUM VALPROATE [Concomitant]
     Active Substance: VALPROATE SODIUM
     Indication: SEIZURE
     Dosage: UNKNOWN DOSE AND FREQUENCY
     Route: 065
  3. CARBAMAZEPINE. [Suspect]
     Active Substance: CARBAMAZEPINE
     Indication: CLONIC CONVULSION
     Dosage: 11.8 MILLIGRAM/KILOGRAM, ONCE DAILY (QD)
     Route: 065
  4. TOPIRAMATE. [Suspect]
     Active Substance: TOPIRAMATE
     Indication: CLONIC CONVULSION
     Dosage: 8.1 MILLIGRAM/KILOGRAM, ONCE DAILY (QD)
     Route: 065
  5. E KEPPRA [Suspect]
     Active Substance: LEVETIRACETAM
     Dosage: 650 MILLIGRAM, ONCE DAILY (QD)
     Route: 048
  6. E KEPPRA [Suspect]
     Active Substance: LEVETIRACETAM
     Indication: CLONIC CONVULSION
     Dosage: UNKNOWN DOSE
  7. CARBAMAZEPINE. [Suspect]
     Active Substance: CARBAMAZEPINE
     Indication: CLONIC CONVULSION
     Dosage: UNKNOWN DOSE
  8. E KEPPRA [Suspect]
     Active Substance: LEVETIRACETAM
     Dosage: UP TO 60 MG/KG/DAY

REACTIONS (2)
  - Atonic seizures [Recovering/Resolving]
  - Multiple-drug resistance [Unknown]
